FAERS Safety Report 6172393-9 (Version None)
Quarter: 2009Q2

REPORT INFORMATION
  Report Type: 
  Country: None (occurrence: None)
  Receive Date: 20090429
  Receipt Date: 20090427
  Transmission Date: 20091009
  Serious: Yes (Death)
  Sender: FDA-Public Use
  Company Number: PHEH2009US04123

PATIENT
  Sex: Male

DRUGS (7)
  1. METOPROLOL TARTRATE [Suspect]
     Indication: HYPERTENSION
     Dosage: 100 MG, BID
     Route: 048
  2. METOPROLOL TARTRATE [Suspect]
     Indication: CORONARY ARTERY DISEASE
  3. FUROSEMIDE [Concomitant]
  4. KLOR-CON [Concomitant]
  5. PREDNISONE [Concomitant]
  6. HYDRALAZINE HCL [Concomitant]
  7. PROGRAF [Concomitant]
     Indication: RENAL TRANSPLANT

REACTIONS (3)
  - CARDIAC FAILURE CONGESTIVE [None]
  - HOSPICE CARE [None]
  - RENAL FAILURE [None]
